FAERS Safety Report 13167433 (Version 5)
Quarter: 2017Q2

REPORT INFORMATION
  Report Type: Spontaneous
  Country: US (occurrence: US)
  Receive Date: 20170131
  Receipt Date: 20170501
  Transmission Date: 20170830
  Serious: Yes (Other)
  Sender: FDA-Public Use
  Company Number: US-PFIZER INC-2017038459

PATIENT
  Age: 74 Year
  Sex: Female
  Weight: 105 kg

DRUGS (16)
  1. INLYTA [Suspect]
     Active Substance: AXITINIB
     Dosage: 5 MG, 2X/DAY (EVERY 12 HOURS) (2 WEEKS)
     Route: 048
     Dates: start: 20170215
  2. NYSTATIN POWDER [Concomitant]
     Active Substance: NYSTATIN
     Indication: FUNGAL SKIN INFECTION
     Dosage: UNK, AS NEEDED (ONCE IN MORNING AND ONCE AT NIGHT )
     Dates: start: 2016
  3. ZINC. [Concomitant]
     Active Substance: ZINC
     Indication: NUTRITIONAL SUPPLEMENTATION
     Dosage: 50 MG, 1X/DAY
     Dates: start: 201610
  4. ZINC. [Concomitant]
     Active Substance: ZINC
     Indication: INFECTION
  5. IMODIUM AD [Concomitant]
     Active Substance: LOPERAMIDE HYDROCHLORIDE
     Indication: DIARRHOEA
     Dosage: AS NEEDED (15MG; 30MG AFTER FIRST LOOSE STOOL)
     Dates: start: 2017
  6. SYNTHROID [Concomitant]
     Active Substance: LEVOTHYROXINE SODIUM
     Indication: THYROID DISORDER
     Dosage: 200 UG, 1X/DAY
     Dates: start: 197606
  7. MIRALAX [Concomitant]
     Active Substance: POLYETHYLENE GLYCOL 3350
     Indication: CONSTIPATION
     Dosage: UNK, AS NEEDED (TAKEN ONE DOSE TWO MONTHS AGO AT AN UNKNOWN DOSE)
     Dates: start: 200906
  8. IMODIUM AD [Concomitant]
     Active Substance: LOPERAMIDE HYDROCHLORIDE
     Dosage: UNK
  9. INLYTA [Suspect]
     Active Substance: AXITINIB
     Indication: THYROID CANCER
     Dosage: 5 MG, 2X/DAY
     Route: 048
     Dates: start: 201612
  10. OMEPRAZOLE. [Concomitant]
     Active Substance: OMEPRAZOLE
     Indication: GASTROOESOPHAGEAL REFLUX DISEASE
     Dosage: 20 MG, UNK (ONCE OR TWICE A DAY AS NEEDED)
  11. OMEPRAZOLE. [Concomitant]
     Active Substance: OMEPRAZOLE
     Dosage: UNK UNK, AS NEEDED (IF NEEDED)
  12. VITAMIN D [Concomitant]
     Active Substance: CHOLECALCIFEROL
     Indication: PARATHYROID DISORDER
     Dosage: 1000 MG, DAILY
     Dates: start: 2009
  13. NYSTATIN. [Concomitant]
     Active Substance: NYSTATIN
     Indication: FUNGAL SKIN INFECTION
     Dosage: 100,000 AS NEEDED ONCE OR TWICE A DAY
     Dates: start: 2016
  14. INLYTA [Suspect]
     Active Substance: AXITINIB
     Dosage: 5 MG, 2X/DAY
     Route: 048
     Dates: start: 20170104
  15. VITAMIN C [Concomitant]
     Active Substance: ASCORBIC ACID
     Indication: NUTRITIONAL SUPPLEMENTATION
     Dosage: 500 MG, DAILY
     Dates: start: 20090519
  16. ZINC. [Concomitant]
     Active Substance: ZINC
     Indication: FUNGAL INFECTION
     Dosage: UNK
     Dates: start: 2017

REACTIONS (17)
  - Haemoptysis [Recovered/Resolved]
  - Vomiting [Recovered/Resolved]
  - Product use in unapproved indication [Not Recovered/Not Resolved]
  - Blood glucose decreased [Not Recovered/Not Resolved]
  - Increased upper airway secretion [Not Recovered/Not Resolved]
  - Dysphonia [Not Recovered/Not Resolved]
  - Throat irritation [Recovering/Resolving]
  - Diarrhoea [Unknown]
  - Blood pressure increased [Not Recovered/Not Resolved]
  - Malaise [Recovered/Resolved]
  - Nasal discomfort [Unknown]
  - Cellulitis [Unknown]
  - Productive cough [Unknown]
  - Laryngitis [Not Recovered/Not Resolved]
  - Urine output increased [Not Recovered/Not Resolved]
  - Food poisoning [Recovered/Resolved]
  - Aphonia [Not Recovered/Not Resolved]

NARRATIVE: CASE EVENT DATE: 20170104
